APPROVED DRUG PRODUCT: METFORMIN HYDROCHLORIDE
Active Ingredient: METFORMIN HYDROCHLORIDE
Strength: 500MG
Dosage Form/Route: TABLET;ORAL
Application: A079148 | Product #001
Applicant: INDICUS PHARMA LLC
Approved: Nov 25, 2008 | RLD: No | RS: No | Type: DISCN